FAERS Safety Report 11744858 (Version 1)
Quarter: 2015Q4

REPORT INFORMATION
  Report Type: Spontaneous
  Country: FR (occurrence: FR)
  Receive Date: 20151116
  Receipt Date: 20151116
  Transmission Date: 20160304
  Serious: Yes (Hospitalization, Disabling)
  Sender: FDA-Public Use
  Company Number: FR-ASTRAZENECA-2015SF09284

PATIENT
  Age: 19551 Day
  Sex: Female

DRUGS (5)
  1. XANAX [Concomitant]
     Active Substance: ALPRAZOLAM
     Dosage: AS REQUIRED
  2. IMOVANE [Concomitant]
     Active Substance: ZOPICLONE
     Dosage: 7.5 MG PER DAY AS REQUIRED
  3. RISPERDAL [Concomitant]
     Active Substance: RISPERIDONE
  4. XEROQUEL [Suspect]
     Active Substance: QUETIAPINE FUMARATE
     Indication: BIPOLAR I DISORDER
     Route: 048
     Dates: start: 201504, end: 20151022
  5. DEPAMIDE [Suspect]
     Active Substance: VALPROMIDE
     Indication: BIPOLAR I DISORDER
     Route: 048
     Dates: start: 201504, end: 20151021

REACTIONS (2)
  - Depression [Unknown]
  - Hypothyroidism [Not Recovered/Not Resolved]

NARRATIVE: CASE EVENT DATE: 20151010
